FAERS Safety Report 9846478 (Version 2)
Quarter: 2014Q2

REPORT INFORMATION
  Report Type: Spontaneous
  Country: DE (occurrence: DE)
  Receive Date: 20140127
  Receipt Date: 20140403
  Transmission Date: 20141212
  Serious: Yes (Other)
  Sender: FDA-Public Use
  Company Number: DE-BAYER-2014-010755

PATIENT
  Age: 40 Year
  Sex: Female

DRUGS (1)
  1. GADOVIST [Suspect]
     Indication: NUCLEAR MAGNETIC RESONANCE IMAGING
     Dosage: UNK
     Dates: start: 201311, end: 201311

REACTIONS (9)
  - Skin discolouration [Not Recovered/Not Resolved]
  - Scar [Not Recovered/Not Resolved]
  - Rash pustular [Not Recovered/Not Resolved]
  - Skin disorder [None]
  - Skin atrophy [None]
  - Skin wrinkling [None]
  - Alopecia [None]
  - Madarosis [None]
  - Fat tissue decreased [None]
